FAERS Safety Report 15121873 (Version 1)
Quarter: 2018Q3

REPORT INFORMATION
  Report Type: Spontaneous
  Country: US (occurrence: US)
  Receive Date: 20180709
  Receipt Date: 20180709
  Transmission Date: 20181010
  Serious: No
  Sender: FDA-Public Use
  Company Number: US-MYLANLABS-2018M1046052

PATIENT
  Sex: Female

DRUGS (1)
  1. ESTRADIOL TRANSDERMAL SYSTEM [Suspect]
     Active Substance: ESTRADIOL
     Indication: HYSTERECTOMY
     Dosage: 1 UNK, UNK
     Route: 062
     Dates: start: 2017

REACTIONS (12)
  - Application site erythema [Unknown]
  - Application site discolouration [Recovering/Resolving]
  - Emotional disorder [Recovered/Resolved]
  - Depressed mood [Recovered/Resolved]
  - Product adhesion issue [Unknown]
  - Product quality issue [Unknown]
  - Application site pain [Recovered/Resolved]
  - Application site pruritus [Not Recovered/Not Resolved]
  - Application site burn [Recovered/Resolved]
  - Application site exfoliation [Recovering/Resolving]
  - Application site vesicles [Recovering/Resolving]
  - Migraine [Recovered/Resolved]
